FAERS Safety Report 10244813 (Version 2)
Quarter: 2014Q2

REPORT INFORMATION
  Report Type: Spontaneous
  Country: IT (occurrence: IT)
  Receive Date: 20140618
  Receipt Date: 20140626
  Transmission Date: 20141212
  Serious: Yes (Other)
  Sender: FDA-Public Use
  Company Number: IT-TEVA-488113ISR

PATIENT
  Age: 51 Year
  Sex: Female

DRUGS (7)
  1. RAMIPRIL [Suspect]
     Indication: HYPERTENSION
     Dosage: 2.5 MG DAILY
     Route: 048
     Dates: start: 20130926, end: 20140131
  2. RAMIPRIL [Interacting]
     Dates: start: 20140201, end: 20140409
  3. RAMIPRIL [Interacting]
     Dates: start: 20140410
  4. CARDIRENE - 75 MG POLVERE PER SOLUZIONE ORALE SANOFI-AVENTIS S.P.A. [Suspect]
     Indication: HAEMANGIOMA OF SKIN
     Dosage: 75 MG DAILY
     Route: 048
     Dates: start: 20050426, end: 20140131
  5. ANTRA - 20 MG CAPSULE RIGIDE GASTRORESISTENTI- ASTRAZENECA [Suspect]
     Indication: PROPHYLAXIS AGAINST GASTROINTESTINAL ULCER
     Dosage: 20 MG DAILY
     Route: 048
     Dates: start: 20030310, end: 20140131
  6. MELOXICAM [Interacting]
     Indication: CHEST PAIN
     Dosage: 15 MG DAILY
     Route: 048
     Dates: start: 20140101, end: 20140130
  7. PRAZEPAM [Concomitant]
     Indication: ANXIETY
     Route: 048

REACTIONS (5)
  - Hyperchlorhydria [Recovered/Resolved]
  - Hypertension [Recovered/Resolved]
  - Presyncope [Recovered/Resolved]
  - Abdominal pain upper [Recovered/Resolved]
  - Drug interaction [Unknown]
